FAERS Safety Report 5389336-8 (Version None)
Quarter: 2007Q3

REPORT INFORMATION
  Report Type: 
  Country: None (occurrence: None)
  Receive Date: 20070717
  Receipt Date: 20070709
  Transmission Date: 20080115
  Serious: Yes (Other)
  Sender: FDA-Public Use
  Company Number: DE-BRISTOL-MYERS SQUIBB COMPANY-13838750

PATIENT
  Age: 35 Year
  Sex: Male

DRUGS (6)
  1. EFAVIRENZ [Suspect]
  2. STAVUDINE [Suspect]
  3. DIDANOSINE [Suspect]
     Indication: HIV INFECTION
     Dates: end: 20030401
  4. GANCICLOVIR [Concomitant]
     Indication: CYTOMEGALOVIRUS COLITIS
  5. LAMIVUDINE [Concomitant]
     Indication: HIV INFECTION
     Dates: end: 20030401
  6. ZIDOVUDINE [Concomitant]
     Indication: HIV INFECTION
     Dates: end: 20030401

REACTIONS (14)
  - ANAEMIA [None]
  - APATHY [None]
  - BLOOD LACTIC ACID INCREASED [None]
  - CACHEXIA [None]
  - DEPRESSION [None]
  - DIZZINESS [None]
  - FATIGUE [None]
  - HEADACHE [None]
  - HEPATITIS TOXIC [None]
  - HYPOAESTHESIA [None]
  - MITOCHONDRIAL TOXICITY [None]
  - NAUSEA [None]
  - PANCREATITIS [None]
  - TYPE 1 DIABETES MELLITUS [None]
